FAERS Safety Report 7238607-9 (Version None)
Quarter: 2011Q1

REPORT INFORMATION
  Report Type: 
  Country: None (occurrence: None)
  Receive Date: 20110121
  Receipt Date: 20110119
  Transmission Date: 20110831
  Serious: No
  Sender: FDA-Public Use
  Company Number: US-JNJFOC-20101203371

PATIENT
  Sex: Female
  Weight: 86.18 kg

DRUGS (5)
  1. MEDROL [Concomitant]
     Indication: RHEUMATOID ARTHRITIS
     Dosage: 4MG/1 PACK EVERY MONTH
     Route: 048
  2. TYLENOL W/ CODEINE [Concomitant]
     Indication: OSTEOARTHRITIS
  3. INVEGA [Suspect]
     Indication: PRODUCT USED FOR UNKNOWN INDICATION
     Route: 048
  4. SINGULAIR [Concomitant]
     Indication: ASTHMA
     Route: 048
  5. INVEGA [Suspect]
     Route: 048

REACTIONS (3)
  - HEART RATE ABNORMAL [None]
  - DECREASED APPETITE [None]
  - ABDOMINAL PAIN [None]
